FAERS Safety Report 12781112 (Version 1)
Quarter: 2016Q3

REPORT INFORMATION
  Report Type: Spontaneous
  Country: US (occurrence: US)
  Receive Date: 20160926
  Receipt Date: 20160926
  Transmission Date: 20161109
  Serious: Yes (Other)
  Sender: FDA-Public Use
  Company Number: US-DSJP-DSU-2016-131575

PATIENT

DRUGS (6)
  1. TRIBENZOR [Suspect]
     Active Substance: AMLODIPINE BESYLATE\HYDROCHLOROTHIAZIDE\OLMESARTAN MEDOXOMIL
     Dosage: UNK
  2. TRIBENZOR [Suspect]
     Active Substance: AMLODIPINE BESYLATE\HYDROCHLOROTHIAZIDE\OLMESARTAN MEDOXOMIL
     Indication: HYPERTENSION
     Dosage: 40/??/12.5 MG, UNK
  3. XANAX [Suspect]
     Active Substance: ALPRAZOLAM
     Indication: PRODUCT USED FOR UNKNOWN INDICATION
     Dosage: UNK
  4. BYSTOLIC [Concomitant]
     Active Substance: NEBIVOLOL HYDROCHLORIDE
     Indication: HYPERTENSION
     Dosage: UNK
  5. TRIBENZOR [Suspect]
     Active Substance: AMLODIPINE BESYLATE\HYDROCHLOROTHIAZIDE\OLMESARTAN MEDOXOMIL
     Dosage: UNK
  6. TRIBENZOR [Suspect]
     Active Substance: AMLODIPINE BESYLATE\HYDROCHLOROTHIAZIDE\OLMESARTAN MEDOXOMIL
     Dosage: 40/??/12.5 MG, UNK

REACTIONS (11)
  - Pain [Not Recovered/Not Resolved]
  - Fatigue [Recovering/Resolving]
  - Nausea [Recovering/Resolving]
  - Malaise [Recovering/Resolving]
  - Neoplasm malignant [Recovered/Resolved]
  - Dizziness [Recovering/Resolving]
  - Burning sensation [Not Recovered/Not Resolved]
  - Insomnia [Not Recovered/Not Resolved]
  - Drug ineffective [Not Recovered/Not Resolved]
  - Micturition urgency [Not Recovered/Not Resolved]
  - Urine output decreased [Not Recovered/Not Resolved]

NARRATIVE: CASE EVENT DATE: 2014
